FAERS Safety Report 5882737-0 (Version None)
Quarter: 2008Q3

REPORT INFORMATION
  Report Type: 
  Country: None (occurrence: None)
  Receive Date: 20080913
  Receipt Date: 20080813
  Transmission Date: 20090109
  Serious: No
  Sender: FDA-Public Use
  Company Number: US-ABBOTT-08P-163-0470872-00

PATIENT
  Sex: Female
  Weight: 83.082 kg

DRUGS (4)
  1. HUMIRA [Suspect]
     Indication: PSORIASIS
     Route: 058
     Dates: start: 20080515
  2. HUMIRA [Suspect]
     Dosage: PEN
  3. CHOLESTEROL PILL [Concomitant]
     Indication: BLOOD CHOLESTEROL INCREASED
     Route: 048
  4. SMOKING CESSATION MEDICATION [Concomitant]
     Indication: SMOKING CESSATION THERAPY

REACTIONS (2)
  - FLUID RETENTION [None]
  - INJECTION SITE SWELLING [None]
